FAERS Safety Report 9472698 (Version 1)
Quarter: 2013Q3

REPORT INFORMATION
  Report Type: Spontaneous
  Country: US (occurrence: None)
  Receive Date: 20130821
  Receipt Date: 20130821
  Transmission Date: 20140515
  Serious: Yes (Hospitalization)
  Sender: FDA-Public Use
  Company Number: None

PATIENT
  Age: 65 Year
  Sex: Male
  Weight: 87.4 kg

DRUGS (1)
  1. ASPIRIN [Suspect]
     Indication: DIABETES MELLITUS
     Route: 048
     Dates: start: 20130517

REACTIONS (6)
  - Gastric haemorrhage [None]
  - Chest pain [None]
  - Haemoglobin decreased [None]
  - Faeces discoloured [None]
  - Duodenal ulcer [None]
  - Oesophagitis [None]
